FAERS Safety Report 8989074 (Version 1)
Quarter: 2012Q4

REPORT INFORMATION
  Report Type: 
  Country: CO (occurrence: CO)
  Receive Date: 20121227
  Receipt Date: 20121227
  Transmission Date: 20130627
  Serious: Yes (Other)
  Sender: FDA-Public Use
  Company Number: PHHY2012CO003650

PATIENT
  Sex: Male

DRUGS (1)
  1. RASILEZ [Suspect]
     Indication: HYPERTENSION
     Dosage: 150 mg/day
     Route: 048
     Dates: start: 201105, end: 201112

REACTIONS (4)
  - Jaundice [Unknown]
  - Hepatic enzyme increased [Unknown]
  - Visual acuity reduced [Recovered/Resolved]
  - Gastrointestinal disorder [Recovered/Resolved]
